FAERS Safety Report 8402783 (Version 3)
Quarter: 2013Q3

REPORT INFORMATION
  Report Type: Spontaneous
  Country: JP (occurrence: None)
  Receive Date: 20120201
  Receipt Date: 20130814
  Transmission Date: 20140515
  Serious: Yes (Hospitalization)
  Sender: FDA-Public Use
  Company Number: AXC-2012-000016

PATIENT
  Age: 59 Year
  Sex: Male

DRUGS (5)
  1. URSODIOL [Suspect]
     Indication: CHOLESTASIS
     Dosage: 600 MG, QD, ORAL
     Route: 048
     Dates: start: 20110513, end: 20110530
  2. FAMOTIDINE [Suspect]
     Indication: PROPHYLAXIS AGAINST GASTROINTESTINAL ULCER
     Dosage: 20 MG, QD, ORAL
     Route: 048
  3. WYSTAL (CEFOPERAZONE SODIUM, SULBACTAM SODIUM) [Concomitant]
  4. PANABATE (GABEXATE MESILATE) [Concomitant]
  5. RABEPRAZOLE SODIUM [Concomitant]

REACTIONS (11)
  - Liver disorder [None]
  - Prothrombin time prolonged [None]
  - Blood alkaline phosphatase increased [None]
  - Blood bilirubin increased [None]
  - Rash pruritic [None]
  - Urticaria [None]
  - Alanine aminotransferase increased [None]
  - Lymphocyte stimulation test positive [None]
  - Biopsy liver abnormal [None]
  - Cholestasis [None]
  - Jaundice [None]
